FAERS Safety Report 11277031 (Version 1)
Quarter: 2015Q3

REPORT INFORMATION
  Report Type: Spontaneous
  Country: SE (occurrence: SE)
  Receive Date: 20150716
  Receipt Date: 20150716
  Transmission Date: 20151125
  Serious: Yes (Disabling)
  Sender: FDA-Public Use
  Company Number: SE-TEVA-578483ISR

PATIENT
  Age: 82 Year
  Sex: Female

DRUGS (1)
  1. METHOTREXATE 2.5 MILLIGRAM TABLETTER [Suspect]
     Active Substance: METHOTREXATE
     Route: 065

REACTIONS (1)
  - Pleural effusion [Not Recovered/Not Resolved]
